FAERS Safety Report 23693325 (Version 1)
Quarter: 2024Q2

REPORT INFORMATION
  Report Type: Spontaneous
  Country: KR (occurrence: None)
  Receive Date: 20240401
  Receipt Date: 20240401
  Transmission Date: 20240716
  Serious: Yes (Death)
  Sender: FDA-Public Use
  Company Number: 2024A077150

PATIENT
  Sex: Male

DRUGS (6)
  1. IMFINZI [Suspect]
     Active Substance: DURVALUMAB
     Indication: Gallbladder cancer
     Dosage: 500MG / 3VIAL
     Route: 042
     Dates: start: 20231205
  2. IMFINZI [Suspect]
     Active Substance: DURVALUMAB
     Indication: Metastases to liver
     Dosage: 500MG / 3VIAL
     Route: 042
     Dates: start: 20231205
  3. CISPLATIN [Concomitant]
     Active Substance: CISPLATIN
     Indication: Gallbladder cancer
     Dates: start: 20231205
  4. CISPLATIN [Concomitant]
     Active Substance: CISPLATIN
     Indication: Metastases to liver
     Dates: start: 20231205
  5. GEMCITABINE [Concomitant]
     Active Substance: GEMCITABINE
     Indication: Gallbladder cancer
     Dates: start: 20231205
  6. GEMCITABINE [Concomitant]
     Active Substance: GEMCITABINE
     Indication: Metastases to liver
     Dates: start: 20231205

REACTIONS (1)
  - Gallbladder cancer [Fatal]
